FAERS Safety Report 13405160 (Version 3)
Quarter: 2024Q4

REPORT INFORMATION
  Report Type: Spontaneous
  Country: IT (occurrence: IT)
  Receive Date: 20170405
  Receipt Date: 20241011
  Transmission Date: 20250115
  Serious: Yes (Life-Threatening, Hospitalization, Other)
  Sender: SANOFI AVENTIS
  Company Number: IT-SA-2017SA056384

PATIENT
  Age: 66 Year
  Sex: Female

DRUGS (9)
  1. BISOPROLOL [Interacting]
     Active Substance: BISOPROLOL\BISOPROLOL FUMARATE
     Dosage: 5 MG
     Route: 065
  2. AMLODIPINE [Interacting]
     Active Substance: AMLODIPINE BESYLATE
     Dosage: 10 MG
     Route: 065
  3. RIFAMPIN [Interacting]
     Active Substance: RIFAMPIN
     Dosage: 600 MG, BID
     Route: 065
  4. MINOCYCLINE HYDROCHLORIDE [Interacting]
     Active Substance: MINOCYCLINE HYDROCHLORIDE
     Dosage: 100 MG, BID
     Route: 065
  5. CLINDAMYCIN PHOSPHATE [Interacting]
     Active Substance: CLINDAMYCIN PHOSPHATE
     Dosage: 600 MG, BID
     Route: 065
  6. EPINEPHRINE HYDROCHLORIDE [Suspect]
     Active Substance: EPINEPHRINE HYDROCHLORIDE
     Indication: Atrioventricular block complete
     Dosage: UNK
     Route: 065
  7. CALCIUM [Suspect]
     Active Substance: CALCIUM
     Indication: Atrioventricular block complete
     Dosage: UNK
     Route: 065
  8. ATROPINE [Suspect]
     Active Substance: ATROPINE
     Indication: Atrioventricular block complete
     Dosage: UNK
     Route: 042
  9. METFORMIN [Concomitant]
     Active Substance: METFORMIN HYDROCHLORIDE
     Dosage: 850 MG, TID

REACTIONS (9)
  - Acute kidney injury [Recovering/Resolving]
  - Oedema [Recovering/Resolving]
  - Oedema peripheral [Recovering/Resolving]
  - Drug interaction [Recovering/Resolving]
  - Toxicity to various agents [Recovering/Resolving]
  - Atrioventricular block complete [Recovering/Resolving]
  - Sensory disturbance [Recovering/Resolving]
  - Rales [Unknown]
  - Drug ineffective [Unknown]
